FAERS Safety Report 23774903 (Version 1)
Quarter: 2024Q2

REPORT INFORMATION
  Report Type: Spontaneous
  Country: US (occurrence: US)
  Receive Date: 20240423
  Receipt Date: 20240423
  Transmission Date: 20240716
  Serious: Yes (Other)
  Sender: FDA-Public Use
  Company Number: US-AMGEN-USASP2024080288

PATIENT
  Age: 15 Month
  Sex: Female

DRUGS (3)
  1. INFLIXIMAB [Suspect]
     Active Substance: INFLIXIMAB
     Indication: Kawasaki^s disease
     Dosage: UNK
     Route: 065
  2. TOCILIZUMAB [Concomitant]
     Active Substance: TOCILIZUMAB
     Indication: Kawasaki^s disease
     Route: 065
  3. WHOLE BLOOD [Concomitant]
     Active Substance: WHOLE BLOOD
     Route: 065

REACTIONS (3)
  - Cytomegalovirus viraemia [Unknown]
  - Drug effective for unapproved indication [Unknown]
  - Off label use [Unknown]
